FAERS Safety Report 13249286 (Version 1)
Quarter: 2017Q1

REPORT INFORMATION
  Report Type: Spontaneous
  Country: US (occurrence: US)
  Receive Date: 20170218
  Receipt Date: 20170218
  Transmission Date: 20170428
  Serious: No
  Sender: FDA-Public Use
  Company Number: US-ALLERGAN-1682535US

PATIENT
  Age: 78 Year
  Sex: Female
  Weight: 47.62 kg

DRUGS (1)
  1. RESTASIS [Suspect]
     Active Substance: CYCLOSPORINE
     Indication: DRY EYE
     Dosage: 2 GTT, BID
     Route: 047
     Dates: start: 201609

REACTIONS (6)
  - Scratch [Recovered/Resolved]
  - Superficial injury of eye [Recovered/Resolved]
  - Eye irritation [Recovered/Resolved]
  - Wrong technique in product usage process [Unknown]
  - Product dropper issue [Unknown]
  - Product use issue [Unknown]

NARRATIVE: CASE EVENT DATE: 201609
